FAERS Safety Report 7750833-9 (Version None)
Quarter: 2011Q3

REPORT INFORMATION
  Report Type: 
  Country: None (occurrence: None)
  Receive Date: 20110914
  Receipt Date: 20110906
  Transmission Date: 20111222
  Serious: Yes (Hospitalization)
  Sender: FDA-Public Use
  Company Number: US-JNJFOC-20110901807

PATIENT
  Sex: Male
  Weight: 41.41 kg

DRUGS (5)
  1. FOCALIN [Concomitant]
  2. FISH OIL [Concomitant]
  3. REMICADE [Suspect]
     Indication: INFLAMMATORY BOWEL DISEASE
     Route: 042
     Dates: start: 20080619, end: 20100321
  4. HUMIRA [Concomitant]
     Dates: start: 20100409
  5. AMITRIPTYLINE HCL [Concomitant]

REACTIONS (3)
  - ABDOMINAL PAIN [None]
  - INFLAMMATORY BOWEL DISEASE [None]
  - DISEASE PROGRESSION [None]
